FAERS Safety Report 21001671 (Version 1)
Quarter: 2022Q2

REPORT INFORMATION
  Report Type: Spontaneous
  Country: MX (occurrence: MX)
  Receive Date: 20220624
  Receipt Date: 20220624
  Transmission Date: 20220721
  Serious: Yes (Other)
  Sender: FDA-Public Use
  Company Number: MX-BAYER-2022A086117

PATIENT
  Age: 70 Year
  Sex: Male

DRUGS (1)
  1. XARELTO [Suspect]
     Active Substance: RIVAROXABAN
     Indication: Chronic disease
     Dosage: 20 MG, QD
     Route: 048
     Dates: start: 2020

REACTIONS (2)
  - Cardiac pacemaker insertion [Unknown]
  - Implant site bruising [Unknown]

NARRATIVE: CASE EVENT DATE: 20220501
